FAERS Safety Report 14193428 (Version 1)
Quarter: 2017Q4

REPORT INFORMATION
  Report Type: Spontaneous
  Country: US (occurrence: US)
  Receive Date: 20171115
  Receipt Date: 20171115
  Transmission Date: 20180321
  Serious: No
  Sender: FDA-Public Use
  Company Number: US-BAUSCH-BL-2017-002134

PATIENT
  Sex: Male
  Weight: 94.89 kg

DRUGS (1)
  1. XENAZINE [Suspect]
     Active Substance: TETRABENAZINE
     Indication: HUNTINGTON^S DISEASE
     Dosage: 2 TABLETS IN THE MORNING, 1 AND A HALF TABLETS AT NOON, 1 AND A HALF TABLETS AT BED TIME
     Route: 048
     Dates: start: 201203

REACTIONS (2)
  - Drug ineffective [Unknown]
  - Prescribed overdose [Unknown]
